FAERS Safety Report 6416662-3 (Version None)
Quarter: 2009Q4

REPORT INFORMATION
  Report Type: 
  Country: None (occurrence: None)
  Receive Date: 20091027
  Receipt Date: 20081203
  Transmission Date: 20100525
  Serious: No
  Sender: FDA-Public Use
  Company Number: US-ABBOTT-08P-163-0491003-00

PATIENT
  Sex: Male
  Weight: 79.45 kg

DRUGS (3)
  1. VICODIN HP [Suspect]
     Indication: SCIATICA
     Route: 048
     Dates: start: 20050501, end: 20081001
  2. VICODIN HP [Suspect]
     Indication: BACK PAIN
  3. MILK THISTLE [Concomitant]
     Indication: DRUG USE FOR UNKNOWN INDICATION
     Dosage: UNKNOWN

REACTIONS (1)
  - HEPATIC ENZYME INCREASED [None]
